FAERS Safety Report 7355150-7 (Version None)
Quarter: 2011Q1

REPORT INFORMATION
  Report Type: 
  Country: None (occurrence: None)
  Receive Date: 20110225
  Receipt Date: 20101223
  Transmission Date: 20110831
  Serious: No
  Sender: FDA-Public Use
  Company Number: 320900

PATIENT
  Age: 55 Year
  Sex: Male

DRUGS (2)
  1. VICTOZA [Suspect]
     Indication: TYPE 2 DIABETES MELLITUS
     Dosage: SUBCUTANEOUS
     Route: 058
     Dates: start: 20100101, end: 20101201
  2. METFORMIN (METFORMIN) [Concomitant]

REACTIONS (5)
  - THROAT IRRITATION [None]
  - NECK PAIN [None]
  - NAUSEA [None]
  - OROPHARYNGEAL PAIN [None]
  - MUSCLE SPASMS [None]
